FAERS Safety Report 10895956 (Version 1)
Quarter: 2015Q1

REPORT INFORMATION
  Report Type: Spontaneous
  Country: US (occurrence: US)
  Receive Date: 20150308
  Receipt Date: 20150308
  Transmission Date: 20150721
  Serious: No
  Sender: FDA-Public Use
  Company Number: US-ASTRAZENECA-2015SE18840

PATIENT
  Age: 861 Month
  Sex: Male
  Weight: 88 kg

DRUGS (4)
  1. LOT OF MEDICATIONS [Concomitant]
  2. CLARITIN [Concomitant]
     Active Substance: LORATADINE
  3. BENADRYL [Concomitant]
     Active Substance: DIPHENHYDRAMINE HYDROCHLORIDE
  4. SYMBICORT [Suspect]
     Active Substance: BUDESONIDE\FORMOTEROL FUMARATE DIHYDRATE
     Indication: CHRONIC OBSTRUCTIVE PULMONARY DISEASE
     Dosage: 160 4.5 MCG 2 PUFFS BID
     Route: 055
     Dates: start: 201501

REACTIONS (5)
  - Influenza like illness [Not Recovered/Not Resolved]
  - Adverse drug reaction [Unknown]
  - Rhinorrhoea [Not Recovered/Not Resolved]
  - Eye pruritus [Not Recovered/Not Resolved]
  - Pain [Not Recovered/Not Resolved]

NARRATIVE: CASE EVENT DATE: 201501
